FAERS Safety Report 5762312-9 (Version None)
Quarter: 2008Q2

REPORT INFORMATION
  Report Type: 
  Country: None (occurrence: None)
  Receive Date: 20080609
  Receipt Date: 20080529
  Transmission Date: 20081010
  Serious: Yes (Other)
  Sender: FDA-Public Use
  Company Number: US-JNJFOC-20080600357

PATIENT
  Age: 40 Year
  Sex: Female

DRUGS (8)
  1. DURAGESIC-100 [Suspect]
     Route: 062
  2. DURAGESIC-100 [Suspect]
     Route: 062
  3. DURAGESIC-100 [Suspect]
     Indication: DRUG USE FOR UNKNOWN INDICATION
     Route: 062
  4. LORTAB [Suspect]
     Indication: DRUG USE FOR UNKNOWN INDICATION
     Route: 065
  5. ACTIQ [Suspect]
     Dosage: 200 UG AND 400 UG LOZENGES
     Route: 002
  6. ACTIQ [Suspect]
     Route: 002
  7. ACTIQ [Suspect]
     Indication: PAIN
     Route: 002
  8. DIAZEPAM [Concomitant]
     Indication: DRUG USE FOR UNKNOWN INDICATION
     Route: 065

REACTIONS (3)
  - DENTAL CARIES [None]
  - DRUG DEPENDENCE [None]
  - TOOTH LOSS [None]
